FAERS Safety Report 10144157 (Version 2)
Quarter: 2014Q2

REPORT INFORMATION
  Report Type: Report from Study
  Country: US (occurrence: US)
  Receive Date: 20140430
  Receipt Date: 20140609
  Transmission Date: 20141212
  Serious: Yes (Death, Hospitalization)
  Sender: FDA-Public Use
  Company Number: US-ACTELION-A-US2014-97969

PATIENT
  Age: 43 Year
  Sex: Female

DRUGS (2)
  1. VELETRI [Suspect]
     Indication: COR PULMONALE CHRONIC
     Dosage: 17.5 NG/KG, PER MIN
     Route: 042
     Dates: start: 20140117
  2. COUMADIN [Concomitant]

REACTIONS (3)
  - Death [Fatal]
  - Scleroderma [Unknown]
  - Pulmonary arterial hypertension [Unknown]
